FAERS Safety Report 20408930 (Version 1)
Quarter: 2022Q1

REPORT INFORMATION
  Report Type: Other
  Country: AR (occurrence: AR)
  Receive Date: 20220201
  Receipt Date: 20220201
  Transmission Date: 20220423
  Serious: Yes (Hospitalization, Other)
  Sender: FDA-Public Use
  Company Number: AR-002147023-NVSC2020AR024296

PATIENT
  Age: 77 Year
  Sex: Female

DRUGS (7)
  1. XOLAIR [Suspect]
     Active Substance: OMALIZUMAB
     Indication: Asthma
     Dosage: 150 MG, ONCE A MONTH
     Route: 058
     Dates: start: 20190504
  2. XOLAIR [Suspect]
     Active Substance: OMALIZUMAB
     Dosage: 150 MG, ONCE A MONTH
     Route: 058
     Dates: end: 20211101
  3. SYMBICORT [Concomitant]
     Active Substance: BUDESONIDE\FORMOTEROL FUMARATE DIHYDRATE
     Indication: Product used for unknown indication
     Dosage: UNK
     Route: 065
  4. SPIRIVA [Concomitant]
     Active Substance: TIOTROPIUM BROMIDE MONOHYDRATE
     Indication: Product used for unknown indication
     Dosage: UNK
     Route: 065
  5. ENALAPRIL MALEATE [Concomitant]
     Active Substance: ENALAPRIL MALEATE
     Indication: Product used for unknown indication
     Dosage: UNK
     Route: 065
  6. NABILA [MEMANTINE HYDROCHLORIDE] [Concomitant]
     Indication: Product used for unknown indication
     Dosage: UNK
     Route: 065
  7. DIUREX (ARGENTINA) [Concomitant]
     Indication: Product used for unknown indication
     Dosage: UNK
     Route: 065

REACTIONS (33)
  - Synovial cyst [Unknown]
  - Gastric cancer [Unknown]
  - Pneumonia [Recovered/Resolved]
  - Musculoskeletal stiffness [Unknown]
  - Urticaria [Recovered/Resolved]
  - Lymphadenopathy [Unknown]
  - Muscle spasms [Unknown]
  - Illness [Unknown]
  - Peripheral swelling [Unknown]
  - Anger [Unknown]
  - Acne [Unknown]
  - Skin exfoliation [Unknown]
  - Secretion discharge [Unknown]
  - Immune system disorder [Unknown]
  - Pruritus [Recovered/Resolved]
  - Discomfort [Recovered/Resolved]
  - Malaise [Not Recovered/Not Resolved]
  - Feeling abnormal [Unknown]
  - Erythema [Unknown]
  - Rhinitis [Unknown]
  - Dermatitis allergic [Unknown]
  - Mobility decreased [Unknown]
  - Burning sensation [Unknown]
  - Catarrh [Unknown]
  - Gastrointestinal neoplasm [Recovered/Resolved]
  - Syncope [Unknown]
  - Gait disturbance [Unknown]
  - Nosocomial infection [Recovered/Resolved]
  - Fatigue [Unknown]
  - Asthma [Recovering/Resolving]
  - Burning sensation [Recovered/Resolved]
  - Bronchitis [Unknown]
  - Headache [Unknown]

NARRATIVE: CASE EVENT DATE: 20191001
